FAERS Safety Report 11577481 (Version 1)
Quarter: 2015Q3

REPORT INFORMATION
  Report Type: Spontaneous
  Country: US (occurrence: US)
  Receive Date: 20150916
  Receipt Date: 20150916
  Transmission Date: 20151125
  Serious: No
  Sender: FDA-Public Use
  Company Number: US-ELI_LILLY_AND_COMPANY-US201306003602

PATIENT
  Age: 72 Year
  Sex: Female

DRUGS (2)
  1. PREDNISONE. [Concomitant]
     Active Substance: PREDNISONE
  2. HUMALOG [Suspect]
     Active Substance: INSULIN LISPRO
     Indication: TYPE 2 DIABETES MELLITUS

REACTIONS (6)
  - Blood glucose increased [Recovered/Resolved]
  - Fatigue [Unknown]
  - Hyperhidrosis [Unknown]
  - Blood glucose decreased [Recovered/Resolved]
  - Asthma [Unknown]
  - Lung infection [Unknown]

NARRATIVE: CASE EVENT DATE: 20130611
